FAERS Safety Report 7251069-0 (Version None)
Quarter: 2011Q1

REPORT INFORMATION
  Report Type: 
  Country: None (occurrence: None)
  Receive Date: 20110128
  Receipt Date: 20101217
  Transmission Date: 20110831
  Serious: Yes (Hospitalization, Other)
  Sender: FDA-Public Use
  Company Number: US-BAYER-200943254NA

PATIENT
  Sex: Female
  Weight: 62 kg

DRUGS (5)
  1. YAZ [Suspect]
     Indication: ACNE
  2. YASMIN [Suspect]
     Indication: PRODUCT USED FOR UNKNOWN INDICATION
  3. YAZ [Suspect]
     Indication: PREMENSTRUAL SYNDROME
     Dosage: UNK
     Route: 048
     Dates: start: 20060401, end: 20090318
  4. ZOLOFT [Concomitant]
     Dosage: 50 MG, QD
     Route: 048
  5. UNCODEABLE ^UNCLASSIFIABLE^ [Concomitant]
     Route: 048

REACTIONS (7)
  - PULMONARY EMBOLISM [None]
  - PLEURISY [None]
  - RESPIRATORY FAILURE [None]
  - DYSPNOEA [None]
  - CHEST PAIN [None]
  - PLEURITIC PAIN [None]
  - SINUS TACHYCARDIA [None]
